FAERS Safety Report 7462657-0 (Version None)
Quarter: 2011Q2

REPORT INFORMATION
  Report Type: 
  Country: None (occurrence: None)
  Receive Date: 20110506
  Receipt Date: 20110504
  Transmission Date: 20111010
  Serious: Yes (Hospitalization, Other)
  Sender: FDA-Public Use
  Company Number: PHHY2010BR65738

PATIENT
  Sex: Female

DRUGS (11)
  1. BALCOR [Concomitant]
  2. ISOSORBIDE DINITRATE [Concomitant]
  3. AMLODOPINE BESYLATE AND VALSARTAN [Suspect]
     Indication: HYPERTENSION
     Dosage: 160/5 MG (1 TABLET DAILY)
     Route: 048
  4. PURAN T4 [Concomitant]
  5. ALPRAZOLAM [Concomitant]
  6. ASTRIN [Concomitant]
  7. PAXIL [Concomitant]
  8. PANTOPRAZOLE [Concomitant]
  9. SIXPRAT [Concomitant]
     Dosage: UNK
  10. ADEBILOU [Concomitant]
     Dosage: UNK
  11. LASIX [Concomitant]

REACTIONS (4)
  - ANGINA PECTORIS [None]
  - BLOOD PRESSURE DECREASED [None]
  - CHEST PAIN [None]
  - ARTERIAL OCCLUSIVE DISEASE [None]
